FAERS Safety Report 6994189-8 (Version None)
Quarter: 2010Q3

REPORT INFORMATION
  Report Type: 
  Country: None (occurrence: None)
  Receive Date: 20100917
  Receipt Date: 20100723
  Transmission Date: 20110219
  Serious: No
  Sender: FDA-Public Use
  Company Number: US-ASTRAZENECA-2010SE34606

PATIENT
  Age: 87 Year
  Sex: Male

DRUGS (4)
  1. SEROQUEL [Suspect]
     Indication: AGITATION
     Route: 048
  2. GABAPENTIN [Concomitant]
  3. DULOXETINE [Concomitant]
  4. FLUOXETINE [Concomitant]

REACTIONS (2)
  - BLOOD SODIUM DECREASED [None]
  - INAPPROPRIATE ANTIDIURETIC HORMONE SECRETION [None]
